FAERS Safety Report 7954440-4 (Version None)
Quarter: 2011Q4

REPORT INFORMATION
  Report Type: 
  Country: None (occurrence: None)
  Receive Date: 20111202
  Receipt Date: 20111122
  Transmission Date: 20120403
  Serious: Yes (Hospitalization)
  Sender: FDA-Public Use
  Company Number: FR-GLAXOSMITHKLINE-B0764400A

PATIENT
  Sex: Male

DRUGS (2)
  1. ANTIBIOTICS [Concomitant]
     Dates: start: 20110901, end: 20110911
  2. ZOVIRAX [Suspect]
     Indication: PROPHYLAXIS
     Dosage: 1250MG THREE TIMES PER DAY
     Route: 042
     Dates: start: 20110909, end: 20110912

REACTIONS (1)
  - RENAL FAILURE ACUTE [None]
